FAERS Safety Report 21762486 (Version 1)
Quarter: 2022Q4

REPORT INFORMATION
  Report Type: Spontaneous
  Country: FR (occurrence: FR)
  Receive Date: 20221221
  Receipt Date: 20221221
  Transmission Date: 20230113
  Serious: Yes (Death, Other)
  Sender: FDA-Public Use
  Company Number: FR-BAXTER-2022BAX026209

PATIENT
  Age: 89 Year
  Sex: Male

DRUGS (3)
  1. BORTEZOMIB [Suspect]
     Active Substance: BORTEZOMIB
     Indication: Product used for unknown indication
     Dosage: 2 MG/DOSE 1 DOSE(S)/WEEK 4 WEEK(S)/CYCLE, TREATMENT LINE NUMBER 5, DURATION: 1.9 MONTHS
  2. DEXAMETHASONE [Suspect]
     Active Substance: DEXAMETHASONE
     Indication: Product used for unknown indication
     Dosage: 10 MG/DOSE 2 DOSE(S)/WEEK 4 WEEK(S)/CYCLE, TREATMENT LINE NUMBER 5, DURATION: 1.9 MONTHS
  3. CYCLOPHOSPHAMIDE [Suspect]
     Active Substance: CYCLOPHOSPHAMIDE
     Indication: Product used for unknown indication
     Dosage: 250 MG/DOSE 1 DOSE(S)/WEEK 3 WEEK(S)/CYCLE, TREATMENT LINE NUMBER 5, DURATION: 1.9 MONTHS
     Route: 065

REACTIONS (1)
  - Death [Fatal]

NARRATIVE: CASE EVENT DATE: 20190610
